FAERS Safety Report 5940362-7 (Version None)
Quarter: 2008Q4

REPORT INFORMATION
  Report Type: 
  Country: None (occurrence: None)
  Receive Date: 20081104
  Receipt Date: 20081024
  Transmission Date: 20090506
  Serious: Yes (Hospitalization)
  Sender: FDA-Public Use
  Company Number: FR-ROCHE-481416

PATIENT
  Age: 75 Year
  Sex: Female
  Weight: 52 kg

DRUGS (4)
  1. BONIVA [Suspect]
     Indication: OSTEOPOROSIS
     Route: 048
     Dates: start: 20070202, end: 20070213
  2. FIXICAL VITAMIN D3 [Concomitant]
     Indication: OSTEOPOROSIS
     Dosage: DOSAGE REGIMEN: 1000 MG/800 IU
     Route: 048
     Dates: start: 20061109
  3. ZOLTUM [Concomitant]
     Dosage: FREQUENCY: QD
     Route: 048
     Dates: start: 20061109
  4. CHONDROSULF [Concomitant]
     Indication: OSTEOPOROSIS
     Route: 048
     Dates: start: 20061109

REACTIONS (4)
  - DIZZINESS [None]
  - FALL [None]
  - FEAR [None]
  - WRIST FRACTURE [None]
